FAERS Safety Report 22130680 (Version 3)
Quarter: 2023Q2

REPORT INFORMATION
  Report Type: Report from Study
  Country: AU (occurrence: AU)
  Receive Date: 20230323
  Receipt Date: 20230425
  Transmission Date: 20230722
  Serious: Yes (Hospitalization)
  Sender: FDA-Public Use
  Company Number: AU-002147023-NVSC2023AU013733

PATIENT
  Sex: Female

DRUGS (1)
  1. COSENTYX [Suspect]
     Active Substance: SECUKINUMAB
     Indication: Psoriatic arthropathy
     Dosage: 150 MG, Q2W (ONCE EVERY TWO WEEKS)
     Route: 058
     Dates: start: 20230102

REACTIONS (9)
  - Viral infection [Unknown]
  - Eye infection viral [Unknown]
  - Oropharyngeal pain [Unknown]
  - Ear pain [Unknown]
  - Dyspnoea [Unknown]
  - Nasopharyngitis [Unknown]
  - Inflammation [Unknown]
  - C-reactive protein increased [Unknown]
  - Product use issue [Unknown]
